FAERS Safety Report 8803437 (Version 2)
Quarter: 2012Q4

REPORT INFORMATION
  Report Type: 
  Country: US (occurrence: US)
  Receive Date: 20120924
  Receipt Date: 20121109
  Transmission Date: 20130627
  Serious: Yes (Life-Threatening, Hospitalization, Other)
  Sender: FDA-Public Use
  Company Number: US-ASTRAZENECA-2012SE73233

PATIENT
  Age: 40 Year
  Sex: Female
  Weight: 54.4 kg

DRUGS (13)
  1. SEROQUEL [Suspect]
     Indication: BIPOLAR II DISORDER
     Route: 048
  2. SEROQUEL [Suspect]
     Indication: INSOMNIA
     Route: 048
  3. ADERAL [Concomitant]
     Indication: ATTENTION DEFICIT/HYPERACTIVITY DISORDER
  4. KLONIPIN [Concomitant]
     Indication: ANXIETY
  5. TEMAZEPAM [Concomitant]
     Indication: SLEEP DISORDER
  6. MELATONIN [Concomitant]
     Indication: SLEEP DISORDER
  7. OMEPRAZOLE [Concomitant]
  8. RANITIDINE [Concomitant]
  9. IRON [Concomitant]
  10. B12 [Concomitant]
  11. MAGNESIUM [Concomitant]
  12. CALCIUM [Concomitant]
  13. ZINC [Concomitant]

REACTIONS (2)
  - Suicide attempt [Unknown]
  - Drug dose omission [Unknown]
